FAERS Safety Report 13917329 (Version 1)
Quarter: 2017Q3

REPORT INFORMATION
  Report Type: Spontaneous
  Country: US (occurrence: None)
  Receive Date: 20170827
  Receipt Date: 20170827
  Transmission Date: 20171127
  Serious: No
  Sender: FDA-Public Use
  Company Number: None

PATIENT
  Age: 74 Year
  Sex: Female

DRUGS (1)
  1. TOBRAMYCIN NEBULES 300MG SANDOZ [Suspect]
     Active Substance: TOBRAMYCIN
     Indication: BRONCHIECTASIS
     Dosage: 300MG TWICE  DAY 28 DAYS ON/OFF INHALED VIA NEBULIZER?
     Route: 055
     Dates: start: 20170601

REACTIONS (1)
  - Dysphonia [None]

NARRATIVE: CASE EVENT DATE: 20170824
